FAERS Safety Report 16214576 (Version 3)
Quarter: 2021Q2

REPORT INFORMATION
  Report Type: Report from Study
  Country: TR (occurrence: TR)
  Receive Date: 20190418
  Receipt Date: 20210504
  Transmission Date: 20210716
  Serious: Yes (Life-Threatening, Other)
  Sender: FDA-Public Use
  Company Number: TR-SHIRE-TR201912115

PATIENT

DRUGS (2)
  1. COAGULATION FACTOR VIII (PORCINE, RECOMBINANT) [Suspect]
     Active Substance: ANTIHEMOPHILIC FACTOR PORCINE, B-DOMAIN TRUNCATED RECOMBINANT
     Indication: HAEMOPHILIA A WITH ANTI FACTOR VIII
     Dosage: 9180 INTERNATIONAL UNIT; 20 VIALS (RIGHT ARM)
     Route: 042
     Dates: start: 20190305, end: 20190305
  2. COAGULATION FACTOR VIII (PORCINE, RECOMBINANT) [Suspect]
     Active Substance: ANTIHEMOPHILIC FACTOR PORCINE, B-DOMAIN TRUNCATED RECOMBINANT
     Indication: HAEMOPHILIA A WITH ANTI FACTOR VIII
     Dosage: 9180 INTERNATIONAL UNIT; 20 VIALS (RIGHT ARM)
     Route: 042
     Dates: start: 20190305, end: 20190305

REACTIONS (1)
  - Anamnestic reaction [Not Recovered/Not Resolved]

NARRATIVE: CASE EVENT DATE: 20190319
